FAERS Safety Report 9162709 (Version 2)
Quarter: 2013Q1

REPORT INFORMATION
  Report Type: Spontaneous
  Country: US (occurrence: US)
  Receive Date: 20130314
  Receipt Date: 20130328
  Transmission Date: 20140127
  Serious: Yes (Hospitalization, Other)
  Sender: FDA-Public Use
  Company Number: US-PFIZER INC-2013081459

PATIENT
  Age: 55 Year
  Sex: Female
  Weight: 78.46 kg

DRUGS (9)
  1. CHANTIX [Suspect]
     Indication: SMOKING CESSATION THERAPY
     Dosage: 0.5 MG, 1X/DAY
     Route: 048
  2. CHANTIX [Suspect]
     Dosage: 0.5 MG, 1X/DAY
     Route: 048
     Dates: start: 2013, end: 2013
  3. SYMBICORT [Concomitant]
     Dosage: UNK, 2X/DAY
  4. ALBUTEROL [Concomitant]
     Dosage: UNK
  5. IPRATROPIUM [Concomitant]
     Dosage: UNK
  6. LEXAPRO [Concomitant]
     Dosage: UNK
  7. CYMBALTA [Concomitant]
     Dosage: UNK
  8. PHENAZOPYRIDINE [Concomitant]
     Dosage: UNK
  9. ALPRAZOLAM [Concomitant]
     Dosage: 0.5 MG, 2X/DAY

REACTIONS (11)
  - Chronic obstructive pulmonary disease [Unknown]
  - Lung disorder [Unknown]
  - Cough [Unknown]
  - Pulmonary function test decreased [Unknown]
  - Weight increased [Unknown]
  - Dyspnoea [Unknown]
  - Bronchitis [Unknown]
  - Pneumonia [Unknown]
  - Respiratory disorder [Unknown]
  - Parosmia [Unknown]
  - Therapeutic response unexpected [Unknown]
